FAERS Safety Report 6790725-5 (Version None)
Quarter: 2010Q2

REPORT INFORMATION
  Report Type: 
  Country: None (occurrence: None)
  Receive Date: 20100624
  Receipt Date: 20100614
  Transmission Date: 20101027
  Serious: Yes (Hospitalization)
  Sender: FDA-Public Use
  Company Number: IT-ELI_LILLY_AND_COMPANY-IT201006004972

PATIENT
  Age: 50 Year
  Sex: Male

DRUGS (2)
  1. HUMATROPE [Suspect]
     Dosage: 0.3 MG, UNKNOWN
     Route: 065
     Dates: start: 20090301, end: 20100322
  2. HUMATROPE [Suspect]
     Dosage: 0.25 MG, DAILY (1/D)
     Route: 065
     Dates: start: 20100322, end: 20100607

REACTIONS (2)
  - COLON CANCER [None]
  - HEPATIC LESION [None]
